FAERS Safety Report 7731737-4 (Version None)
Quarter: 2011Q3

REPORT INFORMATION
  Report Type: 
  Country: None (occurrence: None)
  Receive Date: 20110906
  Receipt Date: 20110823
  Transmission Date: 20111222
  Serious: Yes (Hospitalization, Other)
  Sender: FDA-Public Use
  Company Number: DE-MYLANLABS-2011S1017488

PATIENT
  Sex: Male
  Weight: 3.17 kg

DRUGS (2)
  1. CYTOTEC [Concomitant]
     Indication: LABOUR INDUCTION
     Route: 064
  2. FLUOXETINE HCL [Suspect]
     Dosage: 20 [MG/D ]
     Route: 064

REACTIONS (4)
  - MATERNAL EXPOSURE DURING PREGNANCY [None]
  - PREMATURE BABY [None]
  - HYPERBILIRUBINAEMIA NEONATAL [None]
  - NEONATAL RESPIRATORY DISTRESS SYNDROME [None]
